FAERS Safety Report 12260695 (Version 1)
Quarter: 2016Q2

REPORT INFORMATION
  Report Type: Spontaneous
  Country: US (occurrence: US)
  Receive Date: 20160412
  Receipt Date: 20160412
  Transmission Date: 20160815
  Serious: Yes (Other)
  Sender: FDA-Public Use
  Company Number: US-AKORN PHARMACEUTICALS-2016AKN00187

PATIENT
  Sex: Male
  Weight: 63.49 kg

DRUGS (5)
  1. BENZACLIN [Concomitant]
     Active Substance: BENZOYL PEROXIDE\CLINDAMYCIN PHOSPHATE
     Route: 061
  2. CLINDAMYCIN PHOSPHATE. [Concomitant]
     Active Substance: CLINDAMYCIN PHOSPHATE
     Route: 061
  3. MYORISAN [Suspect]
     Active Substance: ISOTRETINOIN
     Dosage: UNK UNK, 1X/DAY
     Route: 048
     Dates: start: 20151026, end: 201602
  4. MINOCYCLINE [Concomitant]
     Active Substance: MINOCYCLINE\MINOCYCLINE HYDROCHLORIDE
  5. MYORISAN [Suspect]
     Active Substance: ISOTRETINOIN
     Dosage: UNK UNK, 2X/DAY
     Route: 048
     Dates: start: 20151130

REACTIONS (10)
  - Arthralgia [Recovered/Resolved]
  - Visual impairment [Recovered/Resolved]
  - Vertigo [Recovered/Resolved]
  - Panic attack [Recovered/Resolved]
  - Unevaluable event [Recovered/Resolved]
  - Fatigue [Recovered/Resolved]
  - Myalgia [Recovered/Resolved]
  - Headache [Recovered/Resolved]
  - Dizziness [Recovered/Resolved]
  - Muscular weakness [Recovered/Resolved]

NARRATIVE: CASE EVENT DATE: 2015
